FAERS Safety Report 4654805-2 (Version None)
Quarter: 2005Q2

REPORT INFORMATION
  Report Type: 
  Country: None (occurrence: None)
  Receive Date: 20050506
  Receipt Date: 20050503
  Transmission Date: 20051028
  Serious: Yes (Life-Threatening)
  Sender: FDA-Public Use
  Company Number: GB-ROCHE-403736

PATIENT
  Age: 54 Year
  Sex: Male
  Weight: 36.7 kg

DRUGS (3)
  1. NAPROXEN [Suspect]
     Indication: ARTHRALGIA
     Route: 048
     Dates: start: 20050222, end: 20050309
  2. ALFUZOSIN [Concomitant]
     Indication: BLOOD PRESSURE INCREASED
     Route: 048
     Dates: start: 20031110
  3. TADALAFIL [Concomitant]
     Indication: ERECTILE DYSFUNCTION
     Route: 048
     Dates: start: 20031202

REACTIONS (3)
  - GASTROINTESTINAL HAEMORRHAGE [None]
  - HAEMOGLOBIN DECREASED [None]
  - MELAENA [None]
